FAERS Safety Report 5798796-X (Version None)
Quarter: 2008Q3

REPORT INFORMATION
  Report Type: 
  Country: None (occurrence: None)
  Receive Date: 20080702
  Receipt Date: 20080701
  Transmission Date: 20090109
  Serious: Yes (Hospitalization)
  Sender: FDA-Public Use
  Company Number: US-BRISTOL-MYERS SQUIBB COMPANY-14246763

PATIENT
  Age: 75 Year
  Sex: Male

DRUGS (15)
  1. CARBOPLATIN [Suspect]
     Indication: NON-SMALL CELL LUNG CANCER
     Dosage: FIRST DOSE WAS GIVEN ON 14-APR-2008, IV, 167 MG. TOTAL DOSE RECEIVED 7.
     Route: 042
     Dates: start: 20080527, end: 20080527
  2. ABRAXANE [Suspect]
     Indication: NON-SMALL CELL LUNG CANCER
     Dosage: FIRST DOSE WAS TAKEN ON 14-APR-2008, 79 MG, IV. TOTAL DOSE RECEIVED 7.
     Route: 042
     Dates: start: 20080527, end: 20080527
  3. ALLOPURINOL [Concomitant]
  4. ASPIRIN [Concomitant]
  5. DIGOXIN [Concomitant]
  6. LOPRESSOR [Concomitant]
  7. ULTRAM [Concomitant]
  8. ZOCOR [Concomitant]
  9. LEXAPRO [Concomitant]
  10. REGLAN [Concomitant]
  11. EXFORGE [Concomitant]
  12. COUMADIN [Concomitant]
  13. AMIODARONE HCL [Concomitant]
  14. PERIACTIN [Concomitant]
  15. FLOMAX [Concomitant]

REACTIONS (3)
  - ANAEMIA [None]
  - HYPOXIA [None]
  - PYREXIA [None]
